FAERS Safety Report 21785897 (Version 1)
Quarter: 2022Q4

REPORT INFORMATION
  Report Type: Spontaneous
  Country: ID (occurrence: ID)
  Receive Date: 20221227
  Receipt Date: 20221227
  Transmission Date: 20230113
  Serious: Yes (Hospitalization)
  Sender: FDA-Public Use
  Company Number: ID-STRIDES ARCOLAB LIMITED-2022SP017406

PATIENT
  Age: 24 Year
  Sex: Male

DRUGS (11)
  1. CAPTOPRIL [Suspect]
     Active Substance: CAPTOPRIL
     Indication: Hyperthyroidism
     Dosage: UNK
     Route: 065
  2. WARFARIN [Suspect]
     Active Substance: WARFARIN
     Indication: Anticoagulant therapy
     Dosage: UNK
     Route: 065
  3. WARFARIN [Suspect]
     Active Substance: WARFARIN
     Dosage: UNK; STARTED AGAIN
     Route: 065
  4. WARFARIN [Suspect]
     Active Substance: WARFARIN
     Dosage: UNK; STARTED AGAIN ON 9TH DAY OF ADMISSION
     Route: 065
  5. WARFARIN [Suspect]
     Active Substance: WARFARIN
     Dosage: 2 MILLIGRAM, QD
     Route: 065
  6. PROPYLTHIOURACIL [Suspect]
     Active Substance: PROPYLTHIOURACIL
     Indication: Hyperthyroidism
     Dosage: UNK
     Route: 065
  7. PROPYLTHIOURACIL [Suspect]
     Active Substance: PROPYLTHIOURACIL
     Dosage: UNK; IN THE EMERGENCY DEPARTMENT
     Route: 065
  8. PROPYLTHIOURACIL [Suspect]
     Active Substance: PROPYLTHIOURACIL
     Dosage: 100 MILLIGRAM, BID
     Route: 065
  9. BISOPROLOL [Suspect]
     Active Substance: BISOPROLOL
     Indication: Hyperthyroidism
     Dosage: UNK
     Route: 065
  10. BISOPROLOL [Suspect]
     Active Substance: BISOPROLOL
     Dosage: UNK
     Route: 065
  11. VITAMIN K [Concomitant]
     Active Substance: PHYTONADIONE
     Indication: Product used for unknown indication
     Dosage: UNK
     Route: 065

REACTIONS (6)
  - Product administration error [Unknown]
  - Subarachnoid haemorrhage [Recovered/Resolved]
  - International normalised ratio abnormal [Recovered/Resolved]
  - Anaemia [Recovered/Resolved]
  - Gastrointestinal haemorrhage [Recovered/Resolved]
  - Off label use [Unknown]
